FAERS Safety Report 20223381 (Version 2)
Quarter: 2022Q2

REPORT INFORMATION
  Report Type: Spontaneous
  Country: US (occurrence: US)
  Receive Date: 20211223
  Receipt Date: 20220629
  Transmission Date: 20220720
  Serious: No
  Sender: FDA-Public Use
  Company Number: US-GILEAD-2021-0561979

PATIENT
  Age: 57 Year
  Sex: Male
  Weight: 90.719 kg

DRUGS (35)
  1. TRUVADA [Suspect]
     Active Substance: EMTRICITABINE\TENOFOVIR DISOPROXIL FUMARATE
     Indication: HIV infection
     Dosage: UNK
     Route: 048
     Dates: start: 2009
  2. TRUVADA [Suspect]
     Active Substance: EMTRICITABINE\TENOFOVIR DISOPROXIL FUMARATE
     Dosage: UNK
     Route: 048
     Dates: start: 2007, end: 201708
  3. BIKTARVY [Concomitant]
     Active Substance: BICTEGRAVIR SODIUM\EMTRICITABINE\TENOFOVIR ALAFENAMIDE FUMARATE
  4. DESCOVY [Concomitant]
     Active Substance: EMTRICITABINE\TENOFOVIR ALAFENAMIDE FUMARATE
  5. ISENTRESS [Concomitant]
     Active Substance: RALTEGRAVIR POTASSIUM
  6. ADVAIR HFA [Concomitant]
     Active Substance: FLUTICASONE PROPIONATE\SALMETEROL XINAFOATE
  7. ALBUTEROL SULFATE [Concomitant]
     Active Substance: ALBUTEROL SULFATE
  8. AMLODIPINE [Concomitant]
     Active Substance: AMLODIPINE BESYLATE
  9. ARIPIPRAZOLE [Concomitant]
     Active Substance: ARIPIPRAZOLE
  10. BENZTROPINE [Concomitant]
     Active Substance: BENZTROPINE
  11. BUSPIRONE [Concomitant]
     Active Substance: BUSPIRONE HYDROCHLORIDE
  12. CHANTIX [Concomitant]
     Active Substance: VARENICLINE TARTRATE
  13. CLONIDINE [Concomitant]
     Active Substance: CLONIDINE
  14. CYCLOBENZAPRINE [Concomitant]
     Active Substance: CYCLOBENZAPRINE
  15. DIAZEPAM [Concomitant]
     Active Substance: DIAZEPAM
  16. FENTANYL [Concomitant]
     Active Substance: FENTANYL
  17. FLUTICASONE [Concomitant]
     Active Substance: FLUTICASONE
  18. FOLIC ACID [Concomitant]
     Active Substance: FOLIC ACID
  19. IBUPROFEN [Concomitant]
     Active Substance: IBUPROFEN
  20. LAMOTRIGINE [Concomitant]
     Active Substance: LAMOTRIGINE
  21. LIDODERM [Concomitant]
     Active Substance: LIDOCAINE
  22. LINZESS [Concomitant]
     Active Substance: LINACLOTIDE
  23. NYSTATIN [Concomitant]
     Active Substance: NYSTATIN
  24. OXYCODONE [Concomitant]
     Active Substance: OXYCODONE
  25. PROAIR HFA [Concomitant]
     Active Substance: ALBUTEROL SULFATE
  26. QUETIAPINE [Concomitant]
     Active Substance: QUETIAPINE
  27. RISPERIDONE [Concomitant]
     Active Substance: RISPERIDONE
  28. ROZEREM [Concomitant]
     Active Substance: RAMELTEON
  29. SEROQUEL [Concomitant]
     Active Substance: QUETIAPINE FUMARATE
  30. SPIRIVA RESPIMAT [Concomitant]
     Active Substance: TIOTROPIUM BROMIDE
  31. SUBOXONE [Concomitant]
     Active Substance: BUPRENORPHINE HYDROCHLORIDE\NALOXONE HYDROCHLORIDE
  32. TAMSULOSIN [Concomitant]
     Active Substance: TAMSULOSIN
  33. TIVICAY [Concomitant]
     Active Substance: DOLUTEGRAVIR SODIUM
  34. TRAZODONE [Concomitant]
     Active Substance: TRAZODONE HYDROCHLORIDE
  35. METHADONE [Concomitant]
     Active Substance: METHADONE HYDROCHLORIDE

REACTIONS (9)
  - Bone demineralisation [Unknown]
  - Osteopenia [Not Recovered/Not Resolved]
  - Rib fracture [Not Recovered/Not Resolved]
  - Pain [Not Recovered/Not Resolved]
  - Emotional distress [Not Recovered/Not Resolved]
  - Anxiety [Not Recovered/Not Resolved]
  - Anhedonia [Not Recovered/Not Resolved]
  - Musculoskeletal chest pain [Not Recovered/Not Resolved]
  - Depression [Not Recovered/Not Resolved]

NARRATIVE: CASE EVENT DATE: 20170701
